FAERS Safety Report 9710981 (Version 1)
Quarter: 2013Q4

REPORT INFORMATION
  Report Type: Spontaneous
  Country: US (occurrence: US)
  Receive Date: 20131126
  Receipt Date: 20131126
  Transmission Date: 20140711
  Serious: No
  Sender: FDA-Public Use
  Company Number: US-BRISTOL-MYERS SQUIBB COMPANY-19094630

PATIENT
  Age: 64 Year
  Sex: Female

DRUGS (9)
  1. BYETTA [Suspect]
     Indication: TYPE 2 DIABETES MELLITUS
     Route: 058
  2. LISINOPRIL [Concomitant]
  3. METFORMIN [Concomitant]
  4. SIMVASTATIN [Concomitant]
  5. ASPIRIN [Concomitant]
  6. NAPROXEN [Concomitant]
     Indication: PAIN
  7. VITAMIN D3 [Concomitant]
     Dosage: 1DF=1000 UNITS NOS
  8. OMEPRAZOLE [Concomitant]
     Dosage: TOOK 3 YESD
  9. CHOLECALCIFEROL [Concomitant]

REACTIONS (2)
  - Vomiting [Recovered/Resolved]
  - Diarrhoea [Recovered/Resolved]
